FAERS Safety Report 4601997-7 (Version None)
Quarter: 2005Q1

REPORT INFORMATION
  Report Type: 
  Country: None (occurrence: None)
  Receive Date: 20050201
  Receipt Date: 20041111
  Transmission Date: 20050727
  Serious: Yes (Hospitalization)
  Sender: FDA-Public Use
  Company Number: ACO_0019_2004

PATIENT
  Age: 42 Year
  Sex: Female

DRUGS (3)
  1. ZANAFLEX [Suspect]
     Dosage: DF
  2. BACLOFEN [Suspect]
     Dosage: DF
  3. XANAX [Suspect]
     Dosage: DF

REACTIONS (3)
  - ACCIDENTAL OVERDOSE [None]
  - COMA [None]
  - RESPIRATORY DISTRESS [None]
